FAERS Safety Report 17604614 (Version 1)
Quarter: 2020Q1

REPORT INFORMATION
  Report Type: Spontaneous
  Country: US (occurrence: US)
  Receive Date: 20200331
  Receipt Date: 20200331
  Transmission Date: 20200409
  Serious: No
  Sender: FDA-Public Use
  Company Number: US-PFIZER INC-2020128204

PATIENT
  Age: 70 Year
  Sex: Male

DRUGS (3)
  1. EUCRISA [Suspect]
     Active Substance: CRISABOROLE
     Indication: PSORIASIS
     Dosage: UNK (APPLIED TO BACK OF NECK/NAPE, BACK OF EARS)
     Dates: start: 201909, end: 201909
  2. MG217 MEDICATED COAL TAR [Concomitant]
     Indication: PSORIASIS
     Dosage: UNK, AS NEEDED
     Route: 061
     Dates: start: 2019
  3. MG217 MEDICATED COAL TAR [Concomitant]
     Dosage: UNK, AS NEEDED
     Route: 061

REACTIONS (5)
  - Off label use [Unknown]
  - Drug hypersensitivity [Recovered/Resolved]
  - Application site pruritus [Recovered/Resolved]
  - Product use in unapproved indication [Unknown]
  - Application site erythema [Recovered/Resolved]

NARRATIVE: CASE EVENT DATE: 201909
